FAERS Safety Report 7802009-4 (Version None)
Quarter: 2011Q4

REPORT INFORMATION
  Report Type: 
  Country: None (occurrence: None)
  Receive Date: 20111007
  Receipt Date: 20110930
  Transmission Date: 20120403
  Serious: Yes (Hospitalization)
  Sender: FDA-Public Use
  Company Number: PHEH2011US05713

PATIENT
  Age: 60 Year
  Sex: Female

DRUGS (2)
  1. TOBI [Suspect]
     Dosage: 300 MG, BID CONTINUOUS DOSING
     Dates: start: 20071218, end: 20101128
  2. PULMOZYME [Concomitant]

REACTIONS (1)
  - LUNG INFECTION [None]
